FAERS Safety Report 6284397-6 (Version None)
Quarter: 2009Q3

REPORT INFORMATION
  Report Type: 
  Country: None (occurrence: None)
  Receive Date: 20090727
  Receipt Date: 20090608
  Transmission Date: 20100115
  Serious: No
  Sender: FDA-Public Use
  Company Number: US-ALEXION-A200900456

PATIENT
  Sex: Female

DRUGS (12)
  1. SOLIRIS [Suspect]
     Indication: PAROXYSMAL NOCTURNAL HAEMOGLOBINURIA
     Dosage: 600 MG, QW
     Route: 042
     Dates: start: 20090602
  2. PHENOBARBITAL [Concomitant]
     Indication: CONVULSION
     Dosage: 20 MG, QD
     Route: 048
  3. COUMADIN [Concomitant]
     Indication: THROMBOSIS
     Dosage: 13 MG, QD
     Route: 048
  4. COUMADIN [Concomitant]
     Indication: CEREBROVASCULAR ACCIDENT
  5. FOSAMAX [Concomitant]
     Indication: OSTEOPENIA
     Dosage: QW
     Route: 048
  6. PREDNISONE [Concomitant]
     Indication: PAROXYSMAL NOCTURNAL HAEMOGLOBINURIA
     Dosage: 60 MG, TIW
     Route: 048
  7. ATIVAN [Concomitant]
     Indication: SLEEP DISORDER
     Dosage: UNK
     Route: 048
  8. FOLATE [Concomitant]
     Indication: PAROXYSMAL NOCTURNAL HAEMOGLOBINURIA
     Dosage: UNK
     Route: 048
  9. IRON [Concomitant]
     Indication: ANAEMIA
     Dosage: UNK
     Route: 048
  10. MULTIVITAMIN                       /00831701/ [Concomitant]
     Indication: MEDICAL DIET
     Dosage: UNK
     Route: 048
  11. CIPRO                              /00697201/ [Concomitant]
     Indication: PROPHYLAXIS
     Dosage: UNK
     Route: 048
  12. TYLENOL (CAPLET) [Concomitant]
     Indication: PREMEDICATION
     Dosage: 1200 MG, UNK

REACTIONS (2)
  - HEADACHE [None]
  - TENSION [None]
